FAERS Safety Report 18408078 (Version 1)
Quarter: 2020Q4

REPORT INFORMATION
  Report Type: Spontaneous
  Country: GB (occurrence: GB)
  Receive Date: 20201021
  Receipt Date: 20201021
  Transmission Date: 20210114
  Serious: Yes (Disabling)
  Sender: FDA-Public Use
  Company Number: GB-009507513-2010GBR005002

PATIENT
  Age: 77 Year
  Sex: Male
  Weight: 87.99 kg

DRUGS (1)
  1. MIRTAZAPINE. [Suspect]
     Active Substance: MIRTAZAPINE
     Indication: DEPRESSION
     Dosage: 15 MILLIGRAM, QD
     Route: 048
     Dates: start: 20141014

REACTIONS (14)
  - Basal cell carcinoma [Unknown]
  - Gait disturbance [Unknown]
  - Dry mouth [Unknown]
  - Myalgia [Unknown]
  - Gynaecomastia [Unknown]
  - Muscle tightness [Unknown]
  - Memory impairment [Unknown]
  - Deep vein thrombosis [Unknown]
  - Yawning [Unknown]
  - Oedema peripheral [Unknown]
  - Hypoaesthesia [Unknown]
  - Hypertension [Unknown]
  - Paraesthesia [Unknown]
  - Type 2 diabetes mellitus [Unknown]
